FAERS Safety Report 7885887-2 (Version None)
Quarter: 2011Q4

REPORT INFORMATION
  Report Type: 
  Country: None (occurrence: None)
  Receive Date: 20111102
  Receipt Date: 20110630
  Transmission Date: 20120403
  Serious: No
  Sender: FDA-Public Use
  Company Number: US-AMGEN-USASP2011033605

PATIENT
  Age: 38 Year
  Sex: Male

DRUGS (2)
  1. HUMIRA [Concomitant]
     Indication: PSORIASIS
     Dosage: UNK
     Dates: end: 20101201
  2. ENBREL [Suspect]
     Indication: PSORIASIS
     Dosage: 50 MG, QWK
     Dates: start: 20051101, end: 20090101

REACTIONS (2)
  - THERAPEUTIC RESPONSE DECREASED [None]
  - PSORIASIS [None]
